FAERS Safety Report 20556490 (Version 5)
Quarter: 2023Q2

REPORT INFORMATION
  Report Type: Spontaneous
  Country: US (occurrence: US)
  Receive Date: 20220307
  Receipt Date: 20230420
  Transmission Date: 20230722
  Serious: Yes (Hospitalization, Disabling, Other)
  Sender: FDA-Public Use
  Company Number: US-ORGANON-O2203USA000293

PATIENT
  Sex: Female

DRUGS (1)
  1. SINGULAIR [Suspect]
     Active Substance: MONTELUKAST SODIUM
     Dosage: UNK
     Route: 048
     Dates: start: 1998, end: 2021

REACTIONS (12)
  - Neuropsychiatric symptoms [Not Recovered/Not Resolved]
  - Sleep disorder [Recovered/Resolved]
  - Dysphemia [Unknown]
  - Suicidal ideation [Recovered/Resolved]
  - Major depression [Not Recovered/Not Resolved]
  - Insomnia [Recovered/Resolved]
  - Memory impairment [Unknown]
  - Obsessive-compulsive disorder [Unknown]
  - Generalised anxiety disorder [Recovering/Resolving]
  - Disturbance in attention [Unknown]
  - Irritability [Unknown]
  - Agitation [Unknown]

NARRATIVE: CASE EVENT DATE: 19980101
